FAERS Safety Report 11088200 (Version 1)
Quarter: 2015Q2

REPORT INFORMATION
  Report Type: Spontaneous
  Country: SA (occurrence: SA)
  Receive Date: 20150504
  Receipt Date: 20150504
  Transmission Date: 20150821
  Serious: Yes (Other)
  Sender: FDA-Public Use
  Company Number: PHHY2015SA049330

PATIENT

DRUGS (1)
  1. CARBAMAZEPINE BIOCHEMIE [Suspect]
     Active Substance: CARBAMAZEPINE
     Indication: MUSCLE SPASMS
     Route: 065

REACTIONS (1)
  - Rash [Unknown]
